FAERS Safety Report 24012220 (Version 2)
Quarter: 2024Q3

REPORT INFORMATION
  Report Type: Spontaneous
  Country: IT (occurrence: IT)
  Receive Date: 20240625
  Receipt Date: 20240710
  Transmission Date: 20241017
  Serious: Yes (Life-Threatening, Hospitalization, Other)
  Sender: SANDOZ
  Company Number: None

PATIENT
  Age: 64 Year
  Sex: Male

DRUGS (3)
  1. AZACITIDINE [Suspect]
     Active Substance: AZACITIDINE
     Indication: Myelodysplastic syndrome
     Dosage: UNK
     Route: 065
     Dates: start: 202008
  2. AZACITIDINE [Suspect]
     Active Substance: AZACITIDINE
     Dosage: UNK (CYCLICAL AZACITIDINE)
     Route: 065
     Dates: start: 202008
  3. ETANERCEPT [Suspect]
     Active Substance: ETANERCEPT
     Indication: Psoriatic arthropathy
     Dosage: UNK (HE RECEIVED ETANERCEPT FOR PSORIATIC ARTHRITIS BETWEEN JANUARY?2018 AND NOVEMBER?2019)
     Route: 065
     Dates: start: 201801, end: 201911

REACTIONS (6)
  - Haemophagocytic lymphohistiocytosis [Recovered/Resolved]
  - Oesophagitis haemorrhagic [Recovered/Resolved]
  - Gastritis haemorrhagic [Recovered/Resolved]
  - Ulcerative gastritis [Recovered/Resolved]
  - Ulcerative duodenitis [Recovered/Resolved]
  - Oesophageal ulcer haemorrhage [Unknown]
